FAERS Safety Report 21772887 (Version 1)
Quarter: 2022Q4

REPORT INFORMATION
  Report Type: Spontaneous
  Country: NL (occurrence: NL)
  Receive Date: 20221223
  Receipt Date: 20221223
  Transmission Date: 20230112
  Serious: Yes (Life-Threatening, Hospitalization)
  Sender: FDA-Public Use
  Company Number: None

PATIENT
  Sex: Male
  Weight: 70 kg

DRUGS (2)
  1. PANTOPRAZOLE SODIUM [Suspect]
     Active Substance: PANTOPRAZOLE SODIUM
     Indication: Product used for unknown indication
     Dosage: 1 DD 1, TABLET MSR 40MG / BRAND NAME NOT SPECIFIED, FREQUENCY TIME : 1 DAY, UNIT DOSE: 1 DAY, DURATI
     Dates: start: 20050501, end: 20221005
  2. PERINDOPRIL ERBUMINE [Concomitant]
     Active Substance: PERINDOPRIL ERBUMINE
     Indication: Product used for unknown indication
     Dosage: TABLET, 8 MG (MILLIGRAM), PERINDOPRIL TABLET 8MG (ERBUMINE) / BRAND NAME NOT SPECIFIED, THERAPY STAR

REACTIONS (1)
  - Hypomagnesaemia [Recovered/Resolved]
